FAERS Safety Report 14897681 (Version 1)
Quarter: 2018Q2

REPORT INFORMATION
  Report Type: Other
  Country: CA (occurrence: CA)
  Receive Date: 20180515
  Receipt Date: 20180515
  Transmission Date: 20180711
  Serious: Yes (Hospitalization)
  Sender: FDA-Public Use
  Company Number: CA-APOTEX-2018AP013196

PATIENT
  Age: 52 Year
  Sex: Male
  Weight: 89 kg

DRUGS (1)
  1. APO-LEVOFLOXACIN [Suspect]
     Active Substance: LEVOFLOXACIN
     Indication: LOWER RESPIRATORY TRACT INFECTION
     Dosage: 750 MG, QD
     Route: 048

REACTIONS (10)
  - Rash erythematous [Recovering/Resolving]
  - Oral mucosal erythema [Recovering/Resolving]
  - Gastrointestinal disorder [Recovering/Resolving]
  - Oral pruritus [Recovering/Resolving]
  - Pyrexia [Recovering/Resolving]
  - Oral discomfort [Recovering/Resolving]
  - Rash macular [Recovering/Resolving]
  - Headache [Recovering/Resolving]
  - Diarrhoea [Recovering/Resolving]
  - Rash pruritic [Recovering/Resolving]
